FAERS Safety Report 4750485-6 (Version None)
Quarter: 2005Q3

REPORT INFORMATION
  Report Type: 
  Country: None (occurrence: None)
  Receive Date: 20050823
  Receipt Date: 20050729
  Transmission Date: 20060218
  Serious: Yes (Life-Threatening)
  Sender: FDA-Public Use
  Company Number: PK-GLAXOSMITHKLINE-B0389375A

PATIENT
  Age: 10 Year
  Sex: Male
  Weight: 40 kg

DRUGS (1)
  1. ZINACEF [Suspect]
     Indication: DRUG USE FOR UNKNOWN INDICATION
     Dosage: 750MG SINGLE DOSE
     Route: 042
     Dates: start: 20050727

REACTIONS (3)
  - BRONCHOSPASM [None]
  - DYSPNOEA [None]
  - URTICARIA GENERALISED [None]
